FAERS Safety Report 14587241 (Version 1)
Quarter: 2018Q1

REPORT INFORMATION
  Report Type: Spontaneous
  Country: JP (occurrence: JP)
  Receive Date: 20180301
  Receipt Date: 20180301
  Transmission Date: 20180509
  Serious: Yes (Other)
  Sender: FDA-Public Use
  Company Number: JP-PFIZER INC-2018086586

PATIENT
  Age: 67 Year
  Sex: Female

DRUGS (2)
  1. CEFMENOXIME [Suspect]
     Active Substance: CEFMENOXIME
     Indication: INFECTIVE CORNEAL ULCER
     Route: 047
  2. LEVOFLOXACIN. [Suspect]
     Active Substance: LEVOFLOXACIN
     Indication: INFECTIVE CORNEAL ULCER
     Route: 047

REACTIONS (3)
  - Condition aggravated [Recovering/Resolving]
  - Infective corneal ulcer [Recovering/Resolving]
  - Toxicity to various agents [Unknown]
